FAERS Safety Report 7007173-5 (Version None)
Quarter: 2010Q3

REPORT INFORMATION
  Report Type: 
  Country: None (occurrence: None)
  Receive Date: 20100922
  Receipt Date: 20100913
  Transmission Date: 20110219
  Serious: Yes (Other)
  Sender: FDA-Public Use
  Company Number: US-AMGEN-KDL438279

PATIENT

DRUGS (1)
  1. ENBREL [Suspect]
     Route: 064

REACTIONS (1)
  - SMALL FOR DATES BABY [None]
